FAERS Safety Report 7950446-X (Version None)
Quarter: 2011Q4

REPORT INFORMATION
  Report Type: 
  Country: None (occurrence: None)
  Receive Date: 20111130
  Receipt Date: 20111116
  Transmission Date: 20120403
  Serious: Yes (Life-Threatening, Hospitalization)
  Sender: FDA-Public Use
  Company Number: US-MYLANLABS-2011S1024181

PATIENT
  Age: 30 Year
  Sex: Male

DRUGS (4)
  1. IBUPROFEN [Suspect]
     Indication: OVERDOSE
     Dosage: 96G (1066 MG/KG)
     Route: 048
  2. EMTRICITABINE [Concomitant]
     Indication: HIV INFECTION
     Route: 065
  3. TENOFOVIR DISOPROXIL FUMARATE [Concomitant]
     Indication: HIV INFECTION
     Route: 065
  4. EFAVIRENZ [Concomitant]
     Indication: HIV INFECTION
     Route: 065

REACTIONS (6)
  - OVERDOSE [None]
  - SHOCK [None]
  - CIRCULATORY COLLAPSE [None]
  - COMA [None]
  - RENAL FAILURE [None]
  - ACIDOSIS [None]
